FAERS Safety Report 15335627 (Version 4)
Quarter: 2018Q4

REPORT INFORMATION
  Report Type: Report from Study
  Country: US (occurrence: US)
  Receive Date: 20180830
  Receipt Date: 20181121
  Transmission Date: 20190204
  Serious: Yes (Other)
  Sender: FDA-Public Use
  Company Number: US-PFIZER INC-2018341052

PATIENT
  Age: 54 Year
  Sex: Male
  Weight: 111.1 kg

DRUGS (1)
  1. BOSULIF [Suspect]
     Active Substance: BOSUTINIB MONOHYDRATE
     Indication: CHRONIC MYELOID LEUKAEMIA
     Dosage: 400 MG, DAILY (100 MG TABLET, FOUR DAILY)
     Route: 048
     Dates: start: 20180813

REACTIONS (19)
  - Fatigue [Unknown]
  - Dry skin [Unknown]
  - Rash papular [Not Recovered/Not Resolved]
  - Cough [Unknown]
  - Dysphonia [Unknown]
  - Renal pain [Recovering/Resolving]
  - Nodule [Unknown]
  - Peripheral swelling [Unknown]
  - Dysuria [Unknown]
  - Insomnia [Unknown]
  - Rash erythematous [Unknown]
  - Pruritus [Unknown]
  - Chromaturia [Unknown]
  - Diarrhoea [Recovered/Resolved]
  - Ear pruritus [Unknown]
  - Dyspepsia [Unknown]
  - Chest pain [Unknown]
  - Dyspnoea [Recovered/Resolved]
  - Heart rate increased [Unknown]

NARRATIVE: CASE EVENT DATE: 201808
